FAERS Safety Report 5900154-1 (Version None)
Quarter: 2008Q3

REPORT INFORMATION
  Report Type: 
  Country: None (occurrence: None)
  Receive Date: 20080926
  Receipt Date: 20080922
  Transmission Date: 20090109
  Serious: Yes (Disabling, Other)
  Sender: FDA-Public Use
  Company Number: US-MERCK-0804USA01343

PATIENT
  Age: 68 Year
  Sex: Female
  Weight: 55 kg

DRUGS (2)
  1. FOSAMAX [Suspect]
     Indication: OSTEOPOROSIS
     Route: 048
     Dates: start: 19960201, end: 20060401
  2. FOSAMAX [Suspect]
     Route: 048

REACTIONS (12)
  - ADVERSE EVENT [None]
  - ARTHRITIS [None]
  - CARPAL TUNNEL SYNDROME [None]
  - CERVICAL POLYP [None]
  - COLONIC POLYP [None]
  - CONTUSION [None]
  - DIVERTICULUM [None]
  - HAEMORRHOIDS [None]
  - IMPAIRED HEALING [None]
  - NODAL OSTEOARTHRITIS [None]
  - OSTEONECROSIS [None]
  - OVERDOSE [None]
